FAERS Safety Report 4368932-0 (Version None)
Quarter: 2004Q2

REPORT INFORMATION
  Report Type: 
  Country: None (occurrence: None)
  Receive Date: 20040527
  Receipt Date: 20040507
  Transmission Date: 20050107
  Serious: Yes (Other)
  Sender: FDA-Public Use
  Company Number: USA040362543

PATIENT
  Age: 60 Year
  Sex: Female
  Weight: 63 kg

DRUGS (4)
  1. FORTEO [Suspect]
     Indication: OSTEOPOROSIS
     Dosage: 20 UG/1 DAY
     Dates: start: 20030201
  2. PREDNISONE [Concomitant]
  3. CALCIUM CARBONATE [Concomitant]
  4. ROCALTROL [Concomitant]

REACTIONS (5)
  - ARTHRALGIA [None]
  - BLOOD CREATININE INCREASED [None]
  - BLOOD PARATHYROID HORMONE DECREASED [None]
  - DRUG INTOLERANCE [None]
  - HYPERCALCAEMIA [None]
